FAERS Safety Report 23559857 (Version 1)
Quarter: 2024Q1

REPORT INFORMATION
  Report Type: Spontaneous
  Country: US (occurrence: None)
  Receive Date: 20240223
  Receipt Date: 20240223
  Transmission Date: 20240410
  Serious: No
  Sender: FDA-Public Use
  Company Number: None

PATIENT
  Age: 29 Year
  Sex: Male

DRUGS (1)
  1. SKYRIZI [Suspect]
     Active Substance: RISANKIZUMAB-RZAA
     Indication: Psoriasis
     Dosage: INJECT 150MG SUBCUTANEOUSLY  AT WEEK 0 AND  WEEK 4  AS  DIRECTED.
     Route: 058
     Dates: start: 202401

REACTIONS (1)
  - Autoimmune disorder [None]
